FAERS Safety Report 9518972 (Version 1)
Quarter: 2013Q1

REPORT INFORMATION
  Report Type: Spontaneous
  Country: US (occurrence: None)
  Receive Date: 20130305
  Receipt Date: 20130305
  Transmission Date: 20140127
  Serious: Yes (Other)
  Sender: FDA-Public Use
  Company Number: 163-21880-11121397

PATIENT
  Age: 82 Year
  Sex: Female

DRUGS (4)
  1. REVLIMID [Suspect]
     Indication: MYELOFIBROSIS
     Dosage: 5 MG, DAILY X 21 DAYS, PO
     Dates: start: 20111001, end: 20111121
  2. BLOOD (BLOOD AND RELATED PRODUCTS) (UNKNOWN) [Concomitant]
  3. FUROSEMIDE [Concomitant]
  4. INCB018424 (RUXOLITINIB) [Concomitant]

REACTIONS (1)
  - Platelet count decreased [None]
